FAERS Safety Report 12455678 (Version 1)
Quarter: 2016Q2

REPORT INFORMATION
  Report Type: Spontaneous
  Country: VE (occurrence: VE)
  Receive Date: 20160610
  Receipt Date: 20160610
  Transmission Date: 20160815
  Serious: Yes (Other)
  Sender: FDA-Public Use
  Company Number: VE-PFIZER INC-2016287970

PATIENT
  Sex: Female

DRUGS (6)
  1. NEURONTIN [Suspect]
     Active Substance: GABAPENTIN
     Dosage: 800 MG, UNK
  2. LYRICA [Suspect]
     Active Substance: PREGABALIN
     Indication: SCIATIC NERVE INJURY
     Dosage: 300 MG, UNK
  3. NEURONTIN [Suspect]
     Active Substance: GABAPENTIN
     Dosage: 600 MG, UNK
  4. LYRICA [Suspect]
     Active Substance: PREGABALIN
     Dosage: 2 DF, UNK (TWO OF THE 175MG PRESENTATION)
  5. GABAPENTIN. [Suspect]
     Active Substance: GABAPENTIN
  6. NEURONTIN [Suspect]
     Active Substance: GABAPENTIN
     Indication: SCIATIC NERVE INJURY
     Dosage: 400 MG, UNK

REACTIONS (7)
  - Flavivirus infection [Unknown]
  - Intentional product misuse [Unknown]
  - Bedridden [Not Recovered/Not Resolved]
  - Condition aggravated [Not Recovered/Not Resolved]
  - Sciatic nerve injury [Not Recovered/Not Resolved]
  - Activities of daily living impaired [Not Recovered/Not Resolved]
  - Musculoskeletal disorder [Not Recovered/Not Resolved]

NARRATIVE: CASE EVENT DATE: 201604
